FAERS Safety Report 8571859-1 (Version None)
Quarter: 2012Q3

REPORT INFORMATION
  Report Type: 
  Country: None (occurrence: None)
  Receive Date: 20120806
  Receipt Date: 20120730
  Transmission Date: 20120928
  Serious: Yes (Life-Threatening)
  Sender: FDA-Public Use
  Company Number: FR-ASTRAZENECA-2012SE53934

PATIENT
  Age: 13 Year
  Sex: Female
  Weight: 40 kg

DRUGS (1)
  1. PROPOFOL [Suspect]
     Indication: SEDATION
     Route: 042

REACTIONS (4)
  - VOMITING [None]
  - HYPOXIA [None]
  - ATELECTASIS [None]
  - ASPIRATION [None]
